FAERS Safety Report 16809150 (Version 1)
Quarter: 2019Q3

REPORT INFORMATION
  Report Type: Spontaneous
  Country: US (occurrence: US)
  Receive Date: 20190916
  Receipt Date: 20190916
  Transmission Date: 20191005
  Serious: Yes (Hospitalization, Other)
  Sender: FDA-Public Use
  Company Number: US-MACLEODS PHARMACEUTICALS US LTD-MAC2019022928

PATIENT

DRUGS (1)
  1. RISEDRONATE [Suspect]
     Active Substance: RISEDRONATE SODIUM
     Indication: OSTEOPOROSIS
     Dosage: UNK
     Route: 065

REACTIONS (10)
  - Conjunctival oedema [Recovering/Resolving]
  - Leukocytosis [Unknown]
  - Periorbital inflammation [Recovering/Resolving]
  - Pyrexia [Recovering/Resolving]
  - Episcleritis [Recovering/Resolving]
  - Conjunctivitis [Recovering/Resolving]
  - C-reactive protein increased [Unknown]
  - Erythema [Recovering/Resolving]
  - Thrombocytosis [Unknown]
  - Eye pain [Recovering/Resolving]
